FAERS Safety Report 8845093 (Version 1)
Quarter: 2012Q4

REPORT INFORMATION
  Report Type: Spontaneous
  Country: US (occurrence: None)
  Receive Date: 20121002
  Receipt Date: 20121002
  Transmission Date: 20130627
  Serious: Yes (Hospitalization, Other)
  Sender: FDA-Public Use
  Company Number: RB-37676-2012

PATIENT
  Age: 26 Year
  Sex: Female

DRUGS (2)
  1. SUBOXONE [Suspect]
  2. SUBOXONE [Suspect]

REACTIONS (2)
  - Palpitations [None]
  - Urticaria [None]
